FAERS Safety Report 14492551 (Version 1)
Quarter: 2018Q1

REPORT INFORMATION
  Report Type: Spontaneous
  Country: US (occurrence: US)
  Receive Date: 20180206
  Receipt Date: 20180206
  Transmission Date: 20180509
  Serious: Yes (Death)
  Sender: FDA-Public Use
  Company Number: US-PFIZER INC-2018052290

PATIENT
  Age: 57 Year
  Sex: Female

DRUGS (11)
  1. DEXTROMETHORPHAN [Concomitant]
     Active Substance: DEXTROMETHORPHAN
     Dosage: UNK
  2. GABAPENTIN. [Concomitant]
     Active Substance: GABAPENTIN
     Dosage: UNK
  3. ANASTROZOLE. [Concomitant]
     Active Substance: ANASTROZOLE
     Dosage: UNK
  4. METOPROLOL TARTRATE. [Concomitant]
     Active Substance: METOPROLOL TARTRATE
     Dosage: UNK
  5. NORCO [Concomitant]
     Active Substance: ACETAMINOPHEN\HYDROCODONE BITARTRATE
  6. FASLODEX [Concomitant]
     Active Substance: FULVESTRANT
     Dosage: UNK
  7. VITAMIN B1 [Concomitant]
     Active Substance: THIAMINE HYDROCHLORIDE
     Dosage: UNK
  8. ATORVASTATIN [Concomitant]
     Active Substance: ATORVASTATIN
     Dosage: UNK
  9. DULOXETINE. [Concomitant]
     Active Substance: DULOXETINE
     Dosage: UNK
  10. HYDROXYZINE [Concomitant]
     Active Substance: HYDROXYZINE HYDROCHLORIDE
     Dosage: UNK
  11. IBRANCE [Suspect]
     Active Substance: PALBOCICLIB
     Indication: BREAST CANCER
     Dosage: 125 MG, DAILY
     Route: 048
     Dates: start: 20180105

REACTIONS (1)
  - Death [Fatal]

NARRATIVE: CASE EVENT DATE: 20180201
